FAERS Safety Report 4928730-3 (Version None)
Quarter: 2006Q1

REPORT INFORMATION
  Report Type: 
  Country: None (occurrence: None)
  Receive Date: 20060223
  Receipt Date: 20060213
  Transmission Date: 20060701
  Serious: Yes (Death)
  Sender: FDA-Public Use
  Company Number: 2005BI021108

PATIENT
  Age: 58 Year
  Sex: Female

DRUGS (19)
  1. AVONEX [Suspect]
     Indication: MULTIPLE SCLEROSIS
     Dosage: IM
     Route: 030
     Dates: start: 19971001
  2. STADOL [Concomitant]
  3. SYMBYAX [Concomitant]
  4. CARDIZEM CD [Concomitant]
  5. LIDODERM [Concomitant]
  6. DYAZIDE [Concomitant]
  7. CARAFATE [Concomitant]
  8. VYTORIN [Concomitant]
  9. ZYRTEC [Concomitant]
  10. NASONEX [Concomitant]
  11. COMPAZINE SUPPOSITORY [Concomitant]
  12. PREVACID [Concomitant]
  13. MYCELEX [Concomitant]
  14. MICARDIS [Concomitant]
  15. ATROVENT NASAL [Concomitant]
  16. ATROVENT [Concomitant]
  17. ALBUTEROL SULATE [Concomitant]
  18. OXYCONTIN [Concomitant]
  19. SINGULAIR [Concomitant]

REACTIONS (2)
  - ALCOHOL POISONING [None]
  - ALCOHOL PROBLEM [None]
